FAERS Safety Report 10171610 (Version 1)
Quarter: 2014Q2

REPORT INFORMATION
  Report Type: Spontaneous
  Country: US (occurrence: None)
  Receive Date: 20140512
  Receipt Date: 20140512
  Transmission Date: 20141212
  Serious: Yes (Other)
  Sender: FDA-Public Use
  Company Number: SYM-2014-20632

PATIENT
  Age: 22 Year
  Sex: Female

DRUGS (5)
  1. WELLBUTRIN [Suspect]
     Indication: MOOD SWINGS
     Dates: start: 2012
  2. LUPRON DEPOT [Suspect]
     Indication: ENDOMETRIOSIS
     Dates: start: 201210, end: 201305
  3. NORETHISTERONE ACETATE [Suspect]
     Indication: PRODUCT USED FOR UNKNOWN INDICATION
     Dates: start: 201210
  4. URELLE (URELLE) (METHYLTHIONINIUM CHLORIDE, METHENAMINE, PHENYL SALICYLATE, HYOSCYAMINE SULFATE, PHOSPHORIC ACID SODIUM) [Concomitant]
  5. VICODIN (VICODIN) (PARACETAMOL, HYDROCODONE BITARTRATE) [Concomitant]

REACTIONS (13)
  - Shock [None]
  - Drug hypersensitivity [None]
  - Hypokinesia [None]
  - Vision blurred [None]
  - Hyperventilation [None]
  - Agraphia [None]
  - Hypoaesthesia [None]
  - Thinking abnormal [None]
  - Dizziness [None]
  - Hot flush [None]
  - Mood swings [None]
  - Menorrhagia [None]
  - Amenorrhoea [None]
